FAERS Safety Report 8827898 (Version 1)
Quarter: 2012Q4

REPORT INFORMATION
  Report Type: 
  Country: BR (occurrence: BR)
  Receive Date: 20121005
  Receipt Date: 20121005
  Transmission Date: 20130627
  Serious: Yes (Other)
  Sender: FDA-Public Use
  Company Number: BR-PFIZER INC-2012242985

PATIENT
  Sex: Female

DRUGS (7)
  1. XALATAN [Suspect]
     Indication: OPEN ANGLE GLAUCOMA
     Dosage: 1.5 ug (one drop), 1x/day
     Route: 047
     Dates: end: 2009
  2. TRAVATAN [Suspect]
     Dosage: UNK
     Dates: start: 2009
  3. LIPITOR [Concomitant]
     Indication: LOW DENSITY LIPOPROTEIN ABNORMAL
     Dosage: UNK
     Dates: start: 201204
  4. OLMETEC [Concomitant]
     Dosage: UNK
     Dates: start: 2011
  5. ANCORON [Concomitant]
     Dosage: UNK
     Dates: start: 201112
  6. PRADAXA [Concomitant]
     Dosage: UNK
     Dates: start: 201109
  7. BRIMONIDINE TARTRATE [Concomitant]
     Dosage: UNK
     Dates: start: 2008

REACTIONS (3)
  - Arrhythmia [Not Recovered/Not Resolved]
  - Dry eye [Unknown]
  - Eye pruritus [Not Recovered/Not Resolved]
